FAERS Safety Report 22541944 (Version 1)
Quarter: 2023Q2

REPORT INFORMATION
  Report Type: Spontaneous
  Country: CA (occurrence: CA)
  Receive Date: 20230609
  Receipt Date: 20230609
  Transmission Date: 20230722
  Serious: Yes (Congenital Anomaly)
  Sender: FDA-Public Use
  Company Number: CA-HLS-202301439

PATIENT
  Age: 1 Day
  Sex: Male

DRUGS (4)
  1. ASPIRIN [Concomitant]
     Active Substance: ASPIRIN
     Dosage: NOT SPECIFIED DOSAGE FORM
     Route: 065
  2. CLOZARIL [Suspect]
     Active Substance: CLOZAPINE
     Indication: Schizophrenia
     Dosage: TABLETS DOSAGE FORM
     Route: 065
  3. METFORMIN [Concomitant]
     Active Substance: METFORMIN HYDROCHLORIDE
     Dosage: TABLETS DOSAGE FORM
     Route: 065
  4. OLANZAPINE [Concomitant]
     Active Substance: OLANZAPINE
     Dosage: NOT SPECIFIED DOSAGE FORM
     Route: 065

REACTIONS (3)
  - Agitation neonatal [Unknown]
  - Cleft lip [Unknown]
  - Off label use [Unknown]
